FAERS Safety Report 4871259-1 (Version None)
Quarter: 2005Q4

REPORT INFORMATION
  Report Type: 
  Country: None (occurrence: None)
  Receive Date: 20051229
  Receipt Date: 20051216
  Transmission Date: 20060501
  Serious: Yes (Disabling, Other)
  Sender: FDA-Public Use
  Company Number: 2005170088

PATIENT
  Age: 51 Year
  Sex: Male
  Weight: 115.6672 kg

DRUGS (2)
  1. VIAGRA [Suspect]
     Indication: ERECTILE DYSFUNCTION
     Dosage: 100 MG, ORAL
     Route: 048
  2. LEVITRA [Suspect]
     Indication: ERECTILE DYSFUNCTION

REACTIONS (14)
  - ACCIDENT AT WORK [None]
  - ALOPECIA [None]
  - BLOOD CHOLESTEROL INCREASED [None]
  - CERVICAL VERTEBRAL FRACTURE [None]
  - DRUG EFFECT DECREASED [None]
  - DYSPNOEA EXERTIONAL [None]
  - ERYTHEMA [None]
  - HEADACHE [None]
  - HYPERTENSION [None]
  - PAIN [None]
  - PANIC ATTACK [None]
  - SELF-MEDICATION [None]
  - SINUS CONGESTION [None]
  - SLEEP DISORDER [None]
